FAERS Safety Report 24312778 (Version 3)
Quarter: 2024Q4

REPORT INFORMATION
  Report Type: Report from Study
  Country: MX (occurrence: MX)
  Receive Date: 20240912
  Receipt Date: 20241203
  Transmission Date: 20250115
  Serious: Yes (Other)
  Sender: BIOVITRUM
  Company Number: MX-AstraZeneca-2024A204892

PATIENT
  Age: 34 Week
  Sex: Male
  Weight: 8.78 kg

DRUGS (8)
  1. PALIVIZUMAB [Suspect]
     Active Substance: PALIVIZUMAB
     Indication: Antiviral prophylaxis
     Dosage: MONTHLY?1ST DOSE
     Route: 030
  2. PALIVIZUMAB [Suspect]
     Active Substance: PALIVIZUMAB
     Dosage: MONTHLY?2ND DOSE
     Route: 030
     Dates: end: 20240903
  3. PALIVIZUMAB [Suspect]
     Active Substance: PALIVIZUMAB
     Dosage: MONTHLY?3RD DOSE
     Route: 030
     Dates: end: 20241002
  4. VITAMIN A [Concomitant]
     Active Substance: VITAMIN A
     Indication: Premature baby
  5. VITAMIN B [Concomitant]
     Active Substance: VITAMIN B
     Indication: Premature baby
  6. ASCORBIC ACID [Concomitant]
     Active Substance: ASCORBIC ACID
     Indication: Premature baby
  7. VITAMIN D [Concomitant]
     Active Substance: VITAMIN D NOS
     Indication: Premature baby
  8. FLUTICASONE [Concomitant]
     Active Substance: FLUTICASONE
     Indication: Bronchopulmonary dysplasia
     Dosage: 2 DOSAGE FORM, Q12H
     Route: 065
     Dates: start: 202403

REACTIONS (9)
  - Dyspnoea [Recovered/Resolved]
  - Restlessness [Recovered/Resolved]
  - Somnolence [Recovered/Resolved]
  - Pain [Recovered/Resolved]
  - Emotional disorder [Recovered/Resolved]
  - Secretion discharge [Recovered/Resolved]
  - Fear [Recovered/Resolved]
  - Discomfort [Recovered/Resolved]
  - Crying [Recovered/Resolved]

NARRATIVE: CASE EVENT DATE: 20240903
